FAERS Safety Report 5313626-8 (Version None)
Quarter: 2007Q2

REPORT INFORMATION
  Report Type: 
  Country: None (occurrence: None)
  Receive Date: 20070501
  Receipt Date: 20070424
  Transmission Date: 20071010
  Serious: Yes (Other)
  Sender: FDA-Public Use
  Company Number: 2007UW07949

PATIENT
  Age: 57 Year
  Sex: Female
  Weight: 106.8 kg

DRUGS (3)
  1. TAMOXIFEN CITRATE [Suspect]
     Indication: BREAST CANCER
     Route: 048
     Dates: start: 20030901, end: 20041201
  2. COUMADIN [Concomitant]
  3. ASPIRIN [Concomitant]

REACTIONS (8)
  - CONJUNCTIVITIS [None]
  - CYSTITIS HAEMORRHAGIC [None]
  - DEPRESSED MOOD [None]
  - EPISTAXIS [None]
  - HOT FLUSH [None]
  - INTERNATIONAL NORMALISED RATIO INCREASED [None]
  - PSEUDOMEMBRANOUS COLITIS [None]
  - TUMOUR MARKER INCREASED [None]
